FAERS Safety Report 7898977-5 (Version None)
Quarter: 2011Q4

REPORT INFORMATION
  Report Type: 
  Country: None (occurrence: None)
  Receive Date: 20111107
  Receipt Date: 20111010
  Transmission Date: 20120403
  Serious: Yes (Death)
  Sender: FDA-Public Use
  Company Number: PHHY2011US21252

PATIENT
  Sex: Female

DRUGS (2)
  1. GILENYA [Suspect]
     Indication: RELAPSING-REMITTING MULTIPLE SCLEROSIS
     Dosage: 0.5 MG, QD
     Route: 048
     Dates: start: 20110124
  2. LOSARTAN POTASSIUM [Concomitant]
     Indication: HYPERTENSION
     Dosage: 50 MG, QD
     Route: 048
     Dates: start: 20110501

REACTIONS (14)
  - CARDIAC MURMUR [None]
  - OROPHARYNGEAL PAIN [None]
  - HYPERTHERMIA [None]
  - PYREXIA [None]
  - COUGH [None]
  - MUSCULAR WEAKNESS [None]
  - SKIN LESION [None]
  - MALAISE [None]
  - HYPOPERFUSION [None]
  - RASH [None]
  - HEADACHE [None]
  - BRADYCARDIA [None]
  - ARRHYTHMIA [None]
  - FURUNCLE [None]
